FAERS Safety Report 14730406 (Version 1)
Quarter: 2018Q2

REPORT INFORMATION
  Report Type: Spontaneous
  Country: SE (occurrence: FR)
  Receive Date: 20180406
  Receipt Date: 20180406
  Transmission Date: 20180711
  Serious: Yes (Hospitalization)
  Sender: FDA-Public Use
  Company Number: SE-ANIPHARMA-2018-FR-000027

PATIENT
  Age: 62 Year
  Sex: Male
  Weight: 84 kg

DRUGS (4)
  1. VICTOZA [Suspect]
     Active Substance: LIRAGLUTIDE
     Route: 058
     Dates: end: 20180201
  2. OGASTORO(LANSOPRAZOLE) [Suspect]
     Active Substance: LANSOPRAZOLE
     Route: 048
  3. CANDESARTAN CILEXETIL. [Suspect]
     Active Substance: CANDESARTAN CILEXETIL
     Indication: HYPERTENSION
     Route: 048
  4. ELISOR(PRAVASTATIN SODIUM) [Suspect]
     Active Substance: PRAVASTATIN SODIUM
     Route: 048

REACTIONS (2)
  - Dysphagia [Not Recovered/Not Resolved]
  - Macroglossia [Recovering/Resolving]

NARRATIVE: CASE EVENT DATE: 20180206
